FAERS Safety Report 7792182-9 (Version None)
Quarter: 2011Q4

REPORT INFORMATION
  Report Type: 
  Country: None (occurrence: None)
  Receive Date: 20111003
  Receipt Date: 20111003
  Transmission Date: 20120403
  Serious: Yes (Hospitalization, Disabling)
  Sender: FDA-Public Use
  Company Number: None

PATIENT
  Age: 41 Year
  Sex: Female
  Weight: 56.699 kg

DRUGS (2)
  1. DARVOCET [Concomitant]
     Route: 048
  2. LYRICA [Suspect]
     Indication: FIBROMYALGIA
     Dosage: 75 MG. CAPSULES TWICE DAILY
     Dates: start: 20070705, end: 20090716

REACTIONS (6)
  - DEPRESSION [None]
  - MICTURITION URGENCY [None]
  - MIGRAINE [None]
  - STRESS URINARY INCONTINENCE [None]
  - BLADDER DISORDER [None]
  - URINARY RETENTION [None]
